FAERS Safety Report 8404286-8 (Version None)
Quarter: 2012Q2

REPORT INFORMATION
  Report Type: 
  Country: None (occurrence: None)
  Receive Date: 20120601
  Receipt Date: 20120524
  Transmission Date: 20120825
  Serious: Yes (Other)
  Sender: FDA-Public Use
  Company Number: US-MILLENNIUM PHARMACEUTICALS, INC.-2012-03708

PATIENT

DRUGS (1)
  1. VELCADE [Suspect]
     Indication: TRANSPLANT REJECTION

REACTIONS (1)
  - GRAFT LOSS [None]
